FAERS Safety Report 20907776 (Version 2)
Quarter: 2022Q2

REPORT INFORMATION
  Report Type: Spontaneous
  Country: CA (occurrence: CA)
  Receive Date: 20220602
  Receipt Date: 20220615
  Transmission Date: 20220721
  Serious: Yes (Hospitalization)
  Sender: FDA-Public Use
  Company Number: CA-TEVA-2022-CA-2041260

PATIENT
  Age: 78 Year
  Sex: Male

DRUGS (5)
  1. GABAPENTIN [Suspect]
     Active Substance: GABAPENTIN
     Indication: Product used for unknown indication
     Dosage: 900 MG IN THE MORNING AND 900 MG AT NIGHT AND 600 MG IN THE AFTERNOON
     Route: 065
  2. ZOPICLONE [Suspect]
     Active Substance: ZOPICLONE
     Indication: Product used for unknown indication
     Dosage: 7.5 MILLIGRAM DAILY; AT NIGHT AS-NEEDED
     Route: 065
  3. ACETAMINOPHEN AND CODEINE [Suspect]
     Active Substance: ACETAMINOPHEN\CODEINE PHOSPHATE
     Indication: Product used for unknown indication
     Dosage: 1-2 TABLETS AS NEEDED UP TO FOUR TIMES DAILY
     Route: 065
  4. KETAMINE [Suspect]
     Active Substance: KETAMINE
     Indication: Sciatica
     Dosage: THE INFUSION WAS STARTED AT A RATE OF 10 MG/H AND WAS INCREASED TO 50 MG/H AS TOLERATED TILL HE RECE
     Route: 041
     Dates: start: 20210421
  5. ATORVASTATIN [Concomitant]
     Active Substance: ATORVASTATIN
     Indication: Hyperlipidaemia
     Dosage: 40 MILLIGRAM DAILY;
     Route: 065

REACTIONS (1)
  - Inappropriate antidiuretic hormone secretion [Recovered/Resolved]

NARRATIVE: CASE EVENT DATE: 20210423
